FAERS Safety Report 17142451 (Version 2)
Quarter: 2019Q4

REPORT INFORMATION
  Report Type: Spontaneous
  Country: DE (occurrence: DE)
  Receive Date: 20191211
  Receipt Date: 20191213
  Transmission Date: 20200122
  Serious: Yes (Hospitalization)
  Sender: FDA-Public Use
  Company Number: DE-MYLANLABS-2019M1120364

PATIENT
  Age: 79 Year
  Sex: Male

DRUGS (18)
  1. METOPROLOL. [Suspect]
     Active Substance: METOPROLOL
     Indication: PRODUCT USED FOR UNKNOWN INDICATION
     Dosage: 23.75 MG, 1-0-1-0
  2. IPRATROPIUM BROMIDE. [Concomitant]
     Active Substance: IPRATROPIUM BROMIDE
     Dosage: NK ?G, 4X20 HUB, ?BER INHALATIONSGER?T
     Route: 055
  3. PANTOPRAZOL                        /01263201/ [Concomitant]
     Active Substance: PANTOPRAZOLE
     Dosage: 40 MG, 1-0-0-0
  4. BECLOMETASONE;FORMOTEROL [Concomitant]
     Active Substance: BECLOMETHASONE\FORMOTEROL
     Dosage: 100|6 ?G, MAXIMAL 2 HUB, ?BER INHALATIONSGER?T
     Route: 055
  5. SIMVASTATIN. [Concomitant]
     Active Substance: SIMVASTATIN
     Dosage: 20 MG, 0-0-1-0
  6. ACETYLSALICYLIC ACID [Concomitant]
     Active Substance: ASPIRIN
     Dosage: 100 MG, 0-1-0-0
  7. SALBUTAMOL [Concomitant]
     Active Substance: ALBUTEROL
     Dosage: NK MG, 4X5 GTT, ?BER INHALATIONSGER?T
     Route: 055
  8. ROFLUMILAST. [Concomitant]
     Active Substance: ROFLUMILAST
     Dosage: 0.5 MG, 1-0-0-0
  9. TAMSULOSIN [Concomitant]
     Active Substance: TAMSULOSIN
     Dosage: 0.4 MG, 1-0-0-0
  10. TORASEMID [Concomitant]
     Active Substance: TORSEMIDE
     Dosage: 10 MG, BEI BEDARF
  11. VALSARTAN. [Concomitant]
     Active Substance: VALSARTAN
     Dosage: 80 MG, 1-0-1-0
  12. OXYGEN. [Concomitant]
     Active Substance: OXYGEN
     Dosage: 2L/MIN KONTINUIERLICH
     Route: 055
  13. ACETYLCYSTEIN [Concomitant]
     Active Substance: ACETYLCYSTEINE
     Dosage: 200 MG, 1-1-0-0
  14. VITAMIN B1                         /00056102/ [Concomitant]
     Active Substance: THIAMINE HYDROCHLORIDE
     Dosage: NK NK, 1-0-0-0
  15. MEROPENEM. [Concomitant]
     Active Substance: MEROPENEM
     Dosage: NK MG
  16. AMBROXOL [Concomitant]
     Active Substance: AMBROXOL
     Dosage: 30 MG, 1-1-0-0
  17. METAMIZOL                          /06276701/ [Concomitant]
     Active Substance: METAMIZOLE
     Dosage: 400 MILLIGRAM, QID
  18. AMIODARON                          /00133101/ [Concomitant]
     Active Substance: AMIODARONE
     Dosage: 200 MG, 1-0-0-0

REACTIONS (3)
  - Dyspnoea [Unknown]
  - Oedema peripheral [Unknown]
  - Cough [Unknown]
